FAERS Safety Report 8536863-8 (Version None)
Quarter: 2012Q3

REPORT INFORMATION
  Report Type: 
  Country: None (occurrence: None)
  Receive Date: 20120725
  Receipt Date: 20120717
  Transmission Date: 20120928
  Serious: Yes (Other)
  Sender: FDA-Public Use
  Company Number: ES-VERTEX PHARMACEUTICALS INC.-000000000000001085

PATIENT
  Sex: Female

DRUGS (3)
  1. DIURETIC [Concomitant]
     Dosage: DOSAGE FORM: UNSPECIFIED
     Route: 065
  2. INCIVO [Suspect]
     Indication: HEPATITIS C
     Dosage: DOSAGE FORM: TABLET
     Route: 048
     Dates: end: 20120715
  3. SINTROM [Concomitant]

REACTIONS (1)
  - BLOOD CREATININE INCREASED [None]
